FAERS Safety Report 8517510-8 (Version None)
Quarter: 2012Q3

REPORT INFORMATION
  Report Type: 
  Country: None (occurrence: None)
  Receive Date: 20120718
  Receipt Date: 20080609
  Transmission Date: 20120928
  Serious: Yes (Other)
  Sender: FDA-Public Use
  Company Number: CO-PFIZER INC-2012170820

PATIENT
  Age: 61 Year
  Sex: Male

DRUGS (11)
  1. AMLODIPINE [Concomitant]
     Dosage: 5 MG, 1X/DAY
  2. ACETYLSALICYLIC ACID [Concomitant]
     Dosage: 100 MG, 1X/DAY
  3. LOSARTAN [Concomitant]
     Dosage: 100 MG, 2X/DAY
  4. PRAZOSIN [Concomitant]
     Dosage: 1 MG, 1X/DAY
  5. LIPITOR [Suspect]
     Dosage: 10 MG, 1X/DAY
     Route: 065
  6. METHOCARBAMOL [Concomitant]
     Dosage: 750 MG, 2X/DAY
  7. ACETAMINOPHEN [Concomitant]
     Dosage: 500 MG, 4X/DAY
  8. HYDROCHLOROTHIAZIDE [Concomitant]
     Dosage: 25 MG, 1X/DAY
  9. METOPROLOL TARTRATE [Concomitant]
     Dosage: 50 MG, 2X/DAY
  10. OLMESARTAN MEDOXOMIL [Suspect]
     Dosage: 20 MG, 1X/DAY
     Route: 065
  11. VERAPAMIL HYDROCHLORIDE [Concomitant]
     Dosage: 120 MG, 2X/DAY

REACTIONS (3)
  - HEADACHE [None]
  - RENAL FAILURE CHRONIC [None]
  - ANGIOPATHY [None]
